FAERS Safety Report 7093927-6 (Version None)
Quarter: 2010Q4

REPORT INFORMATION
  Report Type: 
  Country: None (occurrence: None)
  Receive Date: 20101110
  Receipt Date: 20101104
  Transmission Date: 20110411
  Serious: Yes (Life-Threatening, Hospitalization, Other)
  Sender: FDA-Public Use
  Company Number: US-ABBOTT-10P-163-0681160-00

PATIENT
  Sex: Female

DRUGS (4)
  1. DEPAKOTE [Suspect]
     Indication: DEPRESSION
     Dosage: HIGH DOSE
     Dates: end: 20100927
  2. REBIF [Suspect]
     Indication: MULTIPLE SCLEROSIS
     Route: 058
     Dates: start: 20100708
  3. LAMICTAL [Concomitant]
     Indication: DEPRESSION
     Dates: start: 20100801
  4. ABILIFY [Concomitant]
     Indication: DEPRESSION
     Dates: start: 20100801

REACTIONS (11)
  - ARRHYTHMIA [None]
  - BACK PAIN [None]
  - BLOOD PRESSURE ABNORMAL [None]
  - CARDIAC DISORDER [None]
  - CARDIAC OUTPUT DECREASED [None]
  - CENTRAL NERVOUS SYSTEM LESION [None]
  - DEPRESSION [None]
  - DIZZINESS [None]
  - NUCLEAR MAGNETIC RESONANCE IMAGING ABNORMAL [None]
  - RASH MACULAR [None]
  - SYNCOPE [None]
